FAERS Safety Report 8045165-8 (Version None)
Quarter: 2012Q1

REPORT INFORMATION
  Report Type: 
  Country: None (occurrence: None)
  Receive Date: 20120113
  Receipt Date: 20111222
  Transmission Date: 20120608
  Serious: Yes (Hospitalization)
  Sender: FDA-Public Use
  Company Number: AU-ASTRAZENECA-2011SE69730

PATIENT
  Age: 20 Year
  Sex: Female

DRUGS (3)
  1. PRISTIQ [Concomitant]
     Indication: DEPRESSION
  2. SEROQUEL XR [Suspect]
     Route: 048
  3. SEROQUEL XR [Suspect]
     Route: 048

REACTIONS (5)
  - OVERDOSE [None]
  - TACHYCARDIA [None]
  - DELIRIUM [None]
  - CONVULSION [None]
  - SEDATION [None]
